FAERS Safety Report 14633728 (Version 2)
Quarter: 2018Q3

REPORT INFORMATION
  Report Type: Spontaneous
  Country: ZA (occurrence: ZA)
  Receive Date: 20180314
  Receipt Date: 20180924
  Transmission Date: 20181010
  Serious: Yes (Other)
  Sender: FDA-Public Use
  Company Number: ZA-AMGEN-ZAFSP2018034277

PATIENT
  Age: 75 Year
  Sex: Female
  Weight: 72.3 kg

DRUGS (3)
  1. PREDNISONE. [Concomitant]
     Active Substance: PREDNISONE
     Dosage: 20 MG TO WEAN TO 5 MG IN 20 DAYS
     Dates: start: 20170818, end: 201709
  2. METHOTREXATE SODIUM. [Concomitant]
     Active Substance: METHOTREXATE SODIUM
     Dosage: 12.5 MG, QWK
     Dates: start: 20170818, end: 20171027
  3. ENBREL [Suspect]
     Active Substance: ETANERCEPT
     Indication: PRODUCT USED FOR UNKNOWN INDICATION
     Dosage: 50 MG, QWK
     Route: 058
     Dates: start: 2017

REACTIONS (3)
  - Oral discomfort [Unknown]
  - Retinal detachment [Unknown]
  - Condition aggravated [Unknown]
